FAERS Safety Report 13949912 (Version 1)
Quarter: 2017Q3

REPORT INFORMATION
  Report Type: Spontaneous
  Country: CA (occurrence: CA)
  Receive Date: 20170908
  Receipt Date: 20170908
  Transmission Date: 20171128
  Serious: Yes (Other)
  Sender: FDA-Public Use
  Company Number: CA-PFIZER INC-2013306086

PATIENT
  Age: 15 Year
  Sex: Female

DRUGS (1)
  1. RAPAMUNE [Suspect]
     Active Substance: SIROLIMUS
     Indication: HEART TRANSPLANT
     Dosage: 1.0 MG, 1X/DAY
     Dates: start: 20070518

REACTIONS (2)
  - Renal failure [Unknown]
  - Product use in unapproved indication [Not Recovered/Not Resolved]
